FAERS Safety Report 13187239 (Version 2)
Quarter: 2017Q2

REPORT INFORMATION
  Report Type: Spontaneous
  Country: JP (occurrence: JP)
  Receive Date: 20170206
  Receipt Date: 20170406
  Transmission Date: 20170830
  Serious: Yes (Other)
  Sender: FDA-Public Use
  Company Number: JP-ROCHE-1889117

PATIENT
  Age: 5 Decade
  Sex: Female
  Weight: 70 kg

DRUGS (3)
  1. PACLITAXEL. [Suspect]
     Active Substance: PACLITAXEL
     Indication: BREAST CANCER
     Dosage: DOSAGE IS UNCERTAIN.
     Route: 041
     Dates: start: 20170126, end: 20170126
  2. AFINITOR [Concomitant]
     Active Substance: EVEROLIMUS
  3. AVASTIN [Suspect]
     Active Substance: BEVACIZUMAB
     Indication: BREAST CANCER
     Route: 041
     Dates: start: 20170126, end: 20170126

REACTIONS (3)
  - Hepatic function abnormal [Unknown]
  - Tumour lysis syndrome [Unknown]
  - Myocardial infarction [Recovering/Resolving]
